FAERS Safety Report 9633250 (Version 1)
Quarter: 2013Q4

REPORT INFORMATION
  Report Type: Spontaneous
  Country: US (occurrence: None)
  Receive Date: 20131018
  Receipt Date: 20131018
  Transmission Date: 20140711
  Serious: No
  Sender: FDA-Public Use
  Company Number: None

PATIENT
  Age: 35 Year
  Sex: Female
  Weight: 61.24 kg

DRUGS (1)
  1. ZONEGRAN [Suspect]
     Indication: CONVULSION
     Dosage: 3  TWICE DAILY TAKEN BY MOUTH
     Route: 048

REACTIONS (4)
  - Mood altered [None]
  - Abnormal behaviour [None]
  - Aggression [None]
  - Anxiety [None]
